FAERS Safety Report 14336556 (Version 3)
Quarter: 2018Q1

REPORT INFORMATION
  Report Type: Spontaneous
  Country: JP (occurrence: JP)
  Receive Date: 20171229
  Receipt Date: 20180209
  Transmission Date: 20180509
  Serious: Yes (Hospitalization)
  Sender: FDA-Public Use
  Company Number: US-ASTRAZENECA-2017SF32452

PATIENT
  Age: 128 Day
  Sex: Male
  Weight: 6.4 kg

DRUGS (4)
  1. SYNAGIS [Suspect]
     Active Substance: PALIVIZUMAB
     Indication: ANTIVIRAL PROPHYLAXIS
     Dosage: 100.0MG UNKNOWN
     Route: 030
  2. SYNAGIS [Suspect]
     Active Substance: PALIVIZUMAB
     Indication: ANTIVIRAL PROPHYLAXIS
     Dosage: 100.0MG UNKNOWN
     Route: 030
     Dates: start: 20171005, end: 20171005
  3. SYNAGIS [Suspect]
     Active Substance: PALIVIZUMAB
     Indication: ANTIVIRAL PROPHYLAXIS
     Dosage: 100.0MG UNKNOWN
     Route: 030
     Dates: start: 20170904, end: 20170904
  4. SYNAGIS [Suspect]
     Active Substance: PALIVIZUMAB
     Indication: ANTIVIRAL PROPHYLAXIS
     Dosage: 100.0MG UNKNOWN
     Route: 030
     Dates: start: 20171102, end: 20171102

REACTIONS (3)
  - Respiratory syncytial virus infection [Recovered/Resolved]
  - Bronchitis [Recovered/Resolved]
  - Poor feeding infant [Recovered/Resolved]

NARRATIVE: CASE EVENT DATE: 20171108
